FAERS Safety Report 16362107 (Version 1)
Quarter: 2019Q2

REPORT INFORMATION
  Report Type: Spontaneous
  Country: US (occurrence: US)
  Receive Date: 20190419
  Receipt Date: 20190419
  Transmission Date: 20190711
  Serious: Yes (Hospitalization)
  Sender: FDA-Public Use
  Company Number: None

PATIENT
  Age: 59 Year
  Sex: Male

DRUGS (4)
  1. JANUVIA [Concomitant]
     Active Substance: SITAGLIPTIN PHOSPHATE
  2. IRBESARTAN. [Concomitant]
     Active Substance: IRBESARTAN
  3. METFORMIN [Concomitant]
     Active Substance: METFORMIN HYDROCHLORIDE
  4. HUMIRA [Suspect]
     Active Substance: ADALIMUMAB
     Indication: PSORIASIS
     Route: 058
     Dates: start: 20080508

REACTIONS (5)
  - Dehydration [None]
  - Chronic kidney disease [None]
  - Tachycardia [None]
  - Atrial fibrillation [None]
  - Nephrolithiasis [None]

NARRATIVE: CASE EVENT DATE: 201903
